FAERS Safety Report 22376294 (Version 1)
Quarter: 2023Q2

REPORT INFORMATION
  Report Type: Spontaneous
  Country: HK (occurrence: HK)
  Receive Date: 20230527
  Receipt Date: 20230527
  Transmission Date: 20230722
  Serious: Yes (Hospitalization)
  Sender: FDA-Public Use
  Company Number: HK-STRIDES ARCOLAB LIMITED-2023SP007500

PATIENT
  Age: 14 Year
  Sex: Male

DRUGS (25)
  1. MORPHINE SULFATE [Suspect]
     Active Substance: MORPHINE SULFATE
     Indication: Dystonia
     Dosage: 20 MICROGRAM/KILOGRAM, EVERY HOUR (INTRAVENOUS INFUSION)
     Route: 042
  2. MORPHINE SULFATE [Suspect]
     Active Substance: MORPHINE SULFATE
     Indication: Dyskinesia
     Dosage: UNK
     Route: 048
  3. MORPHINE SULFATE [Suspect]
     Active Substance: MORPHINE SULFATE
     Dosage: UNK (DOSE REDUCED)
     Route: 065
  4. MORPHINE SULFATE [Suspect]
     Active Substance: MORPHINE SULFATE
     Dosage: 3 MILLIGRAM, EVERY 6 HRS
     Route: 048
  5. MORPHINE SULFATE [Suspect]
     Active Substance: MORPHINE SULFATE
     Dosage: UNK, (TAPERED OFF )
     Route: 065
  6. DIAZEPAM [Suspect]
     Active Substance: DIAZEPAM
     Indication: Dystonia
     Dosage: UNK
     Route: 048
  7. DIAZEPAM [Suspect]
     Active Substance: DIAZEPAM
     Indication: Dyskinesia
     Dosage: UNK (DOSE REDUCED)
     Route: 065
  8. BACLOFEN [Suspect]
     Active Substance: BACLOFEN
     Indication: Movement disorder
     Dosage: UNK
     Route: 065
  9. BACLOFEN [Suspect]
     Active Substance: BACLOFEN
     Dosage: UNK, (GRADUALLY TAPERED OFF)
     Route: 065
  10. TETRABENAZINE [Suspect]
     Active Substance: TETRABENAZINE
     Indication: Movement disorder
     Dosage: UNK
     Route: 065
  11. TETRABENAZINE [Suspect]
     Active Substance: TETRABENAZINE
     Dosage: UNK, (GRADUALLY TAPERED OFF)
     Route: 065
  12. CARBAMAZEPINE [Suspect]
     Active Substance: CARBAMAZEPINE
     Indication: Epilepsy
     Dosage: UNK
     Route: 065
  13. CLOBAZAM [Suspect]
     Active Substance: CLOBAZAM
     Indication: Epilepsy
     Dosage: UNK
     Route: 065
  14. MIDAZOLAM [Suspect]
     Active Substance: MIDAZOLAM
     Indication: Dystonia
     Dosage: 0.2 MILLIGRAM/KILOGRAM, EVERY HOUR
     Route: 042
  15. MIDAZOLAM [Suspect]
     Active Substance: MIDAZOLAM
     Indication: Dyskinesia
     Dosage: UNK (DOSE REDUCED)
     Route: 065
  16. CLONIDINE [Suspect]
     Active Substance: CLONIDINE
     Indication: Dystonia
     Dosage: 0.58 MICROGRAM/KILOGRAM, EVERY 8 HOURS (0.58 MICROG/KG/DOSE EVERY 8H)
     Route: 048
  17. CLONIDINE [Suspect]
     Active Substance: CLONIDINE
     Indication: Dyskinesia
     Dosage: UNK (DOSE REDUCED)
     Route: 065
  18. CLONIDINE [Suspect]
     Active Substance: CLONIDINE
     Dosage: 0.05 MILLIGRAM, EVERY 6 HRS
     Route: 048
  19. CLONIDINE [Suspect]
     Active Substance: CLONIDINE
     Dosage: UNK, (TAPERED OFF)
     Route: 065
  20. CHLORAL HYDRATE [Suspect]
     Active Substance: CHLORAL HYDRATE
     Indication: Dyskinesia
     Dosage: 23 MILLIGRAM/KILOGRAM, EVERY 6 HRS (23 MG/KG/DOSE EVERY 6H)
     Route: 048
  21. CHLORAL HYDRATE [Suspect]
     Active Substance: CHLORAL HYDRATE
     Indication: Dystonia
     Dosage: UNK (DOSE REDUCED)
     Route: 065
  22. CHLORAL HYDRATE [Suspect]
     Active Substance: CHLORAL HYDRATE
     Dosage: 500 MILLIGRAM PER DAY
     Route: 048
  23. CHLORAL HYDRATE [Suspect]
     Active Substance: CHLORAL HYDRATE
     Dosage: UNK, (TAPERED OFF)
     Route: 065
  24. KETAMINE [Suspect]
     Active Substance: KETAMINE
     Indication: Dystonia
     Dosage: 5 MICROGRAM/KILOGRAM PER MIN (INTRAVENOUS INFUSION)
     Route: 042
  25. KETAMINE [Suspect]
     Active Substance: KETAMINE
     Indication: Dyskinesia
     Dosage: UNK (DOSE REDUCED AND LATER GRADUALLY TAPERED OFF)
     Route: 065

REACTIONS (9)
  - Hypoventilation [Recovered/Resolved]
  - Hyperphosphataemia [Recovered/Resolved]
  - Metabolic acidosis [Recovered/Resolved]
  - Rhabdomyolysis [Recovered/Resolved]
  - Acute kidney injury [Recovered/Resolved]
  - Respiratory failure [Recovered/Resolved]
  - Sedation complication [Recovered/Resolved]
  - Hypotension [Recovered/Resolved]
  - Off label use [Unknown]
